FAERS Safety Report 5340795-6 (Version None)
Quarter: 2007Q2

REPORT INFORMATION
  Report Type: 
  Country: None (occurrence: None)
  Receive Date: 20070405
  Receipt Date: 20070103
  Transmission Date: 20071010
  Serious: No
  Sender: FDA-Public Use
  Company Number: US200701000714

PATIENT
  Age: 34 Year
  Sex: Female

DRUGS (2)
  1. CYMBALTA [Suspect]
     Indication: LIBIDO DECREASED
     Dosage: SEE IMAGE
     Dates: start: 20060601
  2. CYMBALTA [Suspect]
     Indication: LIBIDO DECREASED
     Dosage: SEE IMAGE
     Dates: start: 20060801

REACTIONS (7)
  - ANOREXIA [None]
  - DIZZINESS [None]
  - EAR PAIN [None]
  - HYPERHIDROSIS [None]
  - INSOMNIA [None]
  - NAUSEA [None]
  - TREMOR [None]
